FAERS Safety Report 4518558-0 (Version None)
Quarter: 2004Q4

REPORT INFORMATION
  Report Type: 
  Country: None (occurrence: None)
  Receive Date: 20041203
  Receipt Date: 20041129
  Transmission Date: 20050328
  Serious: Yes (Hospitalization)
  Sender: FDA-Public Use
  Company Number: US-MERCK-0411USA04163

PATIENT
  Age: 47 Year
  Sex: Female

DRUGS (5)
  1. VIOXX [Suspect]
     Indication: BACK PAIN
     Route: 048
     Dates: start: 20000101, end: 20040101
  2. VIOXX [Suspect]
     Indication: ARTHRITIS
     Route: 048
     Dates: start: 20000101, end: 20040101
  3. AMBIEN [Concomitant]
     Route: 065
  4. ZOLOFT [Concomitant]
     Route: 065
  5. MAXALT [Concomitant]
     Route: 065

REACTIONS (3)
  - ANXIETY [None]
  - BACK DISORDER [None]
  - INTERVERTEBRAL DISC OPERATION [None]
